FAERS Safety Report 25075312 (Version 1)
Quarter: 2025Q1

REPORT INFORMATION
  Report Type: Spontaneous
  Country: IT (occurrence: IT)
  Receive Date: 20250313
  Receipt Date: 20250313
  Transmission Date: 20250408
  Serious: Yes (Other)
  Sender: MYLAN
  Company Number: IT-MYLANLABS-2025M1021154

PATIENT
  Age: 85 Year
  Sex: Female

DRUGS (3)
  1. PREDNISONE [Suspect]
     Active Substance: PREDNISONE
     Indication: Necrotising retinitis
     Dosage: 25 MILLIGRAM, QD
  2. DEXAMETHASONE [Suspect]
     Active Substance: DEXAMETHASONE
     Indication: Necrotising retinitis
     Dosage: UNK, QID, IN RIGHT EYE
  3. LETROZOLE [Concomitant]
     Active Substance: LETROZOLE
     Indication: Breast cancer female

REACTIONS (3)
  - Necrotising retinitis [Unknown]
  - Retinal neovascularisation [Unknown]
  - Toxoplasmosis [Unknown]
